FAERS Safety Report 15035486 (Version 1)
Quarter: 2018Q2

REPORT INFORMATION
  Report Type: Spontaneous
  Country: US (occurrence: US)
  Receive Date: 20180620
  Receipt Date: 20180620
  Transmission Date: 20180711
  Serious: No
  Sender: FDA-Public Use
  Company Number: US-BRECKENRIDGE PHARMACEUTICAL, INC.-2049693

PATIENT
  Sex: Female

DRUGS (1)
  1. ESTRADIOL AND NORETHINDRONE ACETATE [Suspect]
     Active Substance: ESTRADIOL\NORETHINDRONE ACETATE
     Route: 048

REACTIONS (8)
  - Alopecia [Unknown]
  - Vision blurred [Unknown]
  - Lacrimation increased [Unknown]
  - Abdominal distension [Unknown]
  - Madarosis [Unknown]
  - Weight increased [Unknown]
  - Peripheral swelling [Unknown]
  - Fatigue [Unknown]
